FAERS Safety Report 13105067 (Version 1)
Quarter: 2017Q1

REPORT INFORMATION
  Report Type: Spontaneous
  Country: US (occurrence: US)
  Receive Date: 20170111
  Receipt Date: 20170111
  Transmission Date: 20170428
  Serious: No
  Sender: FDA-Public Use
  Company Number: None

PATIENT
  Age: 85 Year
  Sex: Female
  Weight: 65.77 kg

DRUGS (8)
  1. LEVOFLOXACIN. [Suspect]
     Active Substance: LEVOFLOXACIN
     Indication: PNEUMONIA
     Dosage: QUANITY - 10 PILLS
     Route: 048
     Dates: start: 20161226, end: 20161227
  2. PROAIR (HFA) [Concomitant]
  3. LISINOPRIL/HCTZ [Concomitant]
     Active Substance: HYDROCHLOROTHIAZIDE\LISINOPRIL
  4. FLONASE [Concomitant]
     Active Substance: FLUTICASONE PROPIONATE
  5. PROBIOTIC [Concomitant]
     Active Substance: PROBIOTICS NOS
  6. VITAMIN D3 [Concomitant]
     Active Substance: CHOLECALCIFEROL
  7. ATORVASTATIN [Concomitant]
     Active Substance: ATORVASTATIN
  8. BABY ASPIRIN [Suspect]
     Active Substance: ASPIRIN

REACTIONS (4)
  - Dizziness [None]
  - Feeling abnormal [None]
  - Malaise [None]
  - Abdominal pain upper [None]

NARRATIVE: CASE EVENT DATE: 20161226
